FAERS Safety Report 4265889-8 (Version None)
Quarter: 2004Q1

REPORT INFORMATION
  Report Type: 
  Country: None (occurrence: None)
  Receive Date: 20040106
  Receipt Date: 20031223
  Transmission Date: 20041129
  Serious: Yes (Hospitalization)
  Sender: FDA-Public Use
  Company Number: CO-JNJFOC-20031103121

PATIENT
  Age: 49 Year
  Sex: Female

DRUGS (4)
  1. REMICADE [Suspect]
     Indication: RHEUMATOID ARTHRITIS
     Dosage: 200 MG, INTRAVENOUS
     Route: 042
     Dates: start: 20021004
  2. REMICADE [Suspect]
     Indication: RHEUMATOID ARTHRITIS
     Dosage: 200 MG, INTRAVENOUS
     Route: 042
     Dates: start: 20031015
  3. AZATHIOPRINE [Concomitant]
  4. CELEBREX [Concomitant]

REACTIONS (5)
  - ABDOMINAL PAIN [None]
  - CERVICITIS [None]
  - LEIOMYOMA [None]
  - OVARIAN EPITHELIAL CANCER [None]
  - UTERINE NEOPLASM [None]
